FAERS Safety Report 4485611-X (Version None)
Quarter: 2004Q4

REPORT INFORMATION
  Report Type: 
  Country: None (occurrence: None)
  Receive Date: 20041026
  Receipt Date: 20041015
  Transmission Date: 20050328
  Serious: Yes (Hospitalization)
  Sender: FDA-Public Use
  Company Number: BR-JNJFOC-20041005555

PATIENT
  Age: 24 Year
  Sex: Female

DRUGS (4)
  1. TOPAMAX [Suspect]
     Route: 065
  2. TOPAMAX [Suspect]
     Route: 065
  3. TOPAMAX [Suspect]
     Indication: CONVULSION PROPHYLAXIS
     Route: 065
  4. GARDENAL [Concomitant]
     Indication: CONVULSION PROPHYLAXIS

REACTIONS (2)
  - LIVER DISORDER [None]
  - VOMITING [None]
